FAERS Safety Report 7435048-6 (Version None)
Quarter: 2011Q2

REPORT INFORMATION
  Report Type: 
  Country: None (occurrence: None)
  Receive Date: 20110425
  Receipt Date: 20110415
  Transmission Date: 20111010
  Serious: Yes (Hospitalization)
  Sender: FDA-Public Use
  Company Number: IT-ASTRAZENECA-2011SE21079

PATIENT
  Age: 19490 Day
  Sex: Female

DRUGS (1)
  1. NOLVADEX [Suspect]
     Route: 048
     Dates: start: 20090430, end: 20110201

REACTIONS (1)
  - DEEP VEIN THROMBOSIS [None]
